FAERS Safety Report 5474193-1 (Version None)
Quarter: 2007Q4

REPORT INFORMATION
  Report Type: 
  Country: None (occurrence: None)
  Receive Date: 20071002
  Receipt Date: 20070924
  Transmission Date: 20080405
  Serious: Yes (Hospitalization)
  Sender: FDA-Public Use
  Company Number: US-SOLVAY-00207034200

PATIENT
  Age: 663 Month
  Sex: Female

DRUGS (7)
  1. MARINOL [Suspect]
     Indication: ILL-DEFINED DISORDER
     Dosage: DAILY DOSE:  UNKNOWN
     Route: 048
  2. CETUXIMAB [Suspect]
     Indication: COLON CANCER
     Dosage: DAILY DOSE:  279 MG DOSE ON 08 AUG 2007
     Route: 042
     Dates: start: 20070207, end: 20070808
  3. LEUCOVORIN CALCIUM [Suspect]
     Indication: COLON CANCER
     Dosage: DAILY DOSE: 744 MG DOSE ON 08 AUG 2007
     Route: 042
     Dates: start: 20070207, end: 20070808
  4. FLUOROURACIL [Suspect]
     Indication: COLON CANCER
     Dosage: DAILY DOSE: 2790 MG, BOLUS OMITTED ON 08 AUG 2007 DUE TO TOXICITY
     Route: 042
     Dates: start: 20070207, end: 20070808
  5. OXALIPLATIN [Suspect]
     Indication: COLON CANCER
     Dosage: DAILY DOSE:  74 MG DOSE ON 08 AUG 2007
     Route: 042
     Dates: start: 20070207, end: 20070808
  6. EMEND [Suspect]
     Indication: ILL-DEFINED DISORDER
     Dosage: DAILY DOSE:  UNKNOWN
     Route: 065
  7. PROTONIX [Suspect]
     Indication: ILL-DEFINED DISORDER
     Dosage: DAILY DOSE:  UNKNOWN
     Route: 048

REACTIONS (2)
  - INFECTION [None]
  - URETERIC OBSTRUCTION [None]
